FAERS Safety Report 15247773 (Version 2)
Quarter: 2018Q4

REPORT INFORMATION
  Report Type: Report from Study
  Country: GB (occurrence: GB)
  Receive Date: 20180807
  Receipt Date: 20181017
  Transmission Date: 20190204
  Serious: Yes (Hospitalization, Other)
  Sender: FDA-Public Use
  Company Number: GB-ROCHE-2119844

PATIENT
  Age: 46 Year
  Sex: Male
  Weight: 83 kg

DRUGS (16)
  1. AMLODIPINE [Concomitant]
     Active Substance: AMLODIPINE BESYLATE
     Route: 048
     Dates: start: 20180501
  2. VEMURAFENIB. [Suspect]
     Active Substance: VEMURAFENIB
     Indication: METASTATIC MALIGNANT MELANOMA
     Dosage: DATE OF MOST RECENT DOSE PRIOR TO THE SERIOUS ADVERSE EVENT : 03/MAY/2018?CYCLE1=28 DAYS  (FOUR TABL
     Route: 048
     Dates: start: 20171219
  3. BETNOVATE [Concomitant]
     Active Substance: BETAMETHASONE
     Indication: FOLLICULITIS
     Route: 065
     Dates: start: 20180417
  4. AMLODIPINE [Concomitant]
     Active Substance: AMLODIPINE BESYLATE
     Indication: HYPERTENSION
     Route: 048
     Dates: start: 20180108
  5. FUCIDIN (FUSIDIC ACID) [Concomitant]
     Active Substance: FUSIDIC ACID
     Route: 061
     Dates: start: 20180403
  6. ITRACONAZOLE. [Concomitant]
     Active Substance: ITRACONAZOLE
     Indication: FOLLICULITIS
     Route: 048
     Dates: start: 20180417, end: 20180423
  7. RAMIPRIL. [Concomitant]
     Active Substance: RAMIPRIL
     Indication: HYPERTENSION
     Route: 048
     Dates: start: 20180501, end: 20180507
  8. EPIDUO [Concomitant]
     Active Substance: ADAPALENE\BENZOYL PEROXIDE
     Indication: FOLLICULITIS
     Route: 065
     Dates: start: 20180417
  9. ATEZOLIZUMAB. [Suspect]
     Active Substance: ATEZOLIZUMAB
     Indication: METASTATIC MALIGNANT MELANOMA
     Dosage: DATE OF MOST RECENT DOSE OF ATEZOLIZUMAB 250 ML (1200 MG/ML) PRIOR TO SAE: 22/MAY/2018?DOSE: 1200 MG
     Route: 042
     Dates: start: 20180123
  10. COBIMETINIB. [Suspect]
     Active Substance: COBIMETINIB
     Indication: METASTATIC MALIGNANT MELANOMA
     Dosage: DATE OF LAST DOSE PRIOR TO SAE: 40 MG:03/MAY/2018?60 MG (THREE, 20 MG TABLETS) PO ONCE A DAY (QD) ON
     Route: 048
     Dates: start: 20171219
  11. PARACETAMOL [Concomitant]
     Active Substance: ACETAMINOPHEN
     Indication: PYREXIA
     Route: 048
     Dates: start: 20180203
  12. ENTONOX [Concomitant]
     Active Substance: NITROUS OXIDE\OXYGEN
     Route: 048
     Dates: start: 20180706, end: 20180706
  13. PARACETAMOL [Concomitant]
     Active Substance: ACETAMINOPHEN
     Indication: PAIN
  14. AMOXICILLIN. [Concomitant]
     Active Substance: AMOXICILLIN
     Indication: PRODUCTIVE COUGH
     Route: 048
     Dates: start: 20180403
  15. TAMIFLU [Concomitant]
     Active Substance: OSELTAMIVIR PHOSPHATE
     Route: 048
     Dates: start: 20180205
  16. ENOXAPARIN [Concomitant]
     Active Substance: ENOXAPARIN
     Indication: PROPHYLAXIS
     Route: 058
     Dates: start: 20180730

REACTIONS (4)
  - Hyperthyroidism [Not Recovered/Not Resolved]
  - Lower respiratory tract infection [Recovering/Resolving]
  - Adrenal insufficiency [Not Recovered/Not Resolved]
  - Pneumonitis [Recovered/Resolved]

NARRATIVE: CASE EVENT DATE: 20180501
